FAERS Safety Report 5413108-9 (Version None)
Quarter: 2007Q3

REPORT INFORMATION
  Report Type: 
  Country: None (occurrence: None)
  Receive Date: 20070813
  Receipt Date: 20070801
  Transmission Date: 20080115
  Serious: Yes (Other)
  Sender: FDA-Public Use
  Company Number: US-PFIZER INC-2007064877

PATIENT
  Sex: Female
  Weight: 74.545 kg

DRUGS (3)
  1. LIPITOR [Suspect]
     Indication: BLOOD CHOLESTEROL INCREASED
     Dates: start: 19980101, end: 20050101
  2. PREMPRO [Concomitant]
  3. CALCIUM CHLORIDE [Concomitant]

REACTIONS (5)
  - ACQUIRED CLAW TOE [None]
  - FOOT DEFORMITY [None]
  - MUSCLE SPASMS [None]
  - PAIN IN EXTREMITY [None]
  - TENDONITIS [None]
